FAERS Safety Report 5722042-6 (Version None)
Quarter: 2008Q2

REPORT INFORMATION
  Report Type: 
  Country: None (occurrence: None)
  Receive Date: 20080429
  Receipt Date: 20080418
  Transmission Date: 20081010
  Serious: Yes (Hospitalization, Other)
  Sender: FDA-Public Use
  Company Number: US-ELI_LILLY_AND_COMPANY-US200804005421

PATIENT
  Sex: Female

DRUGS (6)
  1. HUMALOG [Suspect]
     Indication: DIABETES MELLITUS
     Dates: start: 20070101
  2. HUMALOG [Suspect]
     Dates: start: 20070101
  3. HUMALOG [Suspect]
     Dates: start: 20070101
  4. HUMALOG [Suspect]
     Dates: start: 20070101
  5. HUMALOG MIX 75/25 [Suspect]
     Indication: DIABETES MELLITUS
  6. HUMULIN N [Suspect]

REACTIONS (10)
  - BLOOD GLUCOSE DECREASED [None]
  - BLOOD GLUCOSE INCREASED [None]
  - COLON CANCER [None]
  - DEPRESSED LEVEL OF CONSCIOUSNESS [None]
  - DYSPNOEA [None]
  - LUNG DISORDER [None]
  - MYOCARDIAL INFARCTION [None]
  - NEUROPATHY PERIPHERAL [None]
  - PULMONARY CONGESTION [None]
  - RENAL FAILURE [None]
